FAERS Safety Report 5139458-1 (Version None)
Quarter: 2006Q4

REPORT INFORMATION
  Report Type: 
  Country: None (occurrence: None)
  Receive Date: 20061026
  Receipt Date: 20061026
  Transmission Date: 20070319
  Serious: No
  Sender: FDA-Public Use
  Company Number: None

PATIENT
  Age: 46 Year
  Sex: Male

DRUGS (2)
  1. NITROGLYCERIN [Suspect]
     Indication: CHEST PAIN
     Dosage: .4 MG TAB X 3
  2. NITRO DRIP [Suspect]
     Dosage: 10MCG/MN

REACTIONS (2)
  - CARDIAC ARREST [None]
  - HEART RATE DECREASED [None]
